FAERS Safety Report 12548068 (Version 3)
Quarter: 2016Q3

REPORT INFORMATION
  Report Type: Spontaneous
  Country: US (occurrence: US)
  Receive Date: 20160712
  Receipt Date: 20160808
  Transmission Date: 20161109
  Serious: No
  Sender: FDA-Public Use
  Company Number: US-BEH-2016058411

PATIENT
  Sex: Female
  Weight: 78 kg

DRUGS (10)
  1. EPIPEN [Concomitant]
     Active Substance: EPINEPHRINE
  2. QUINAPRIL. [Concomitant]
     Active Substance: QUINAPRIL
  3. FLONASE [Concomitant]
     Active Substance: FLUTICASONE PROPIONATE
  4. HYDROCHLOROTHIAZIDE. [Concomitant]
     Active Substance: HYDROCHLOROTHIAZIDE
  5. HIZENTRA [Suspect]
     Active Substance: HUMAN IMMUNOGLOBULIN G
     Route: 058
     Dates: start: 20101108
  6. VOLTAREN [Concomitant]
     Active Substance: DICLOFENAC SODIUM
  7. XIFAXAN [Concomitant]
     Active Substance: RIFAXIMIN
  8. DIPHENHYDRAMINE. [Concomitant]
     Active Substance: DIPHENHYDRAMINE
  9. ESTRADIOL. [Concomitant]
     Active Substance: ESTRADIOL
  10. IBUPROFEN. [Concomitant]
     Active Substance: IBUPROFEN

REACTIONS (1)
  - Sinusitis [Unknown]
